FAERS Safety Report 6708754-6 (Version None)
Quarter: 2010Q2

REPORT INFORMATION
  Report Type: 
  Country: None (occurrence: None)
  Receive Date: 20100504
  Receipt Date: 20100422
  Transmission Date: 20101027
  Serious: No
  Sender: FDA-Public Use
  Company Number: US-BIOGENIDEC-2010BI008000

PATIENT
  Age: 47 Year
  Sex: Male

DRUGS (2)
  1. TYSABRI [Suspect]
     Indication: MULTIPLE SCLEROSIS
     Route: 042
     Dates: start: 20091210
  2. AMBIEN [Concomitant]
     Indication: POOR QUALITY SLEEP

REACTIONS (5)
  - APHASIA [None]
  - COUGH [None]
  - INCREASED UPPER AIRWAY SECRETION [None]
  - MEMORY IMPAIRMENT [None]
  - SINUS HEADACHE [None]
